FAERS Safety Report 5744802-8 (Version None)
Quarter: 2008Q2

REPORT INFORMATION
  Report Type: 
  Country: None (occurrence: None)
  Receive Date: 20080520
  Receipt Date: 20080508
  Transmission Date: 20081010
  Serious: Yes (Other)
  Sender: FDA-Public Use
  Company Number: JP-PFIZER INC-2008040563

PATIENT
  Age: 67 Year
  Sex: Male

DRUGS (2)
  1. VFEND [Suspect]
     Dosage: DAILY DOSE:50MG
     Route: 048
     Dates: start: 20080404, end: 20080504
  2. TEGAFUR/GIMERACIL/OTERACIL POTASSIUM [Suspect]
     Route: 048
     Dates: start: 20080421, end: 20080428

REACTIONS (1)
  - NEUTROPHIL COUNT DECREASED [None]
